FAERS Safety Report 23969830 (Version 1)
Quarter: 2024Q2

REPORT INFORMATION
  Report Type: Spontaneous
  Country: US (occurrence: US)
  Receive Date: 20240613
  Receipt Date: 20240613
  Transmission Date: 20240716
  Serious: No
  Sender: FDA-Public Use
  Company Number: US-ELI_LILLY_AND_COMPANY-US202406007428

PATIENT
  Age: 36 Year
  Sex: Male

DRUGS (13)
  1. ZEPBOUND [Suspect]
     Active Substance: TIRZEPATIDE
     Indication: Weight control
     Dosage: 2.5 MG, UNKNOWN
     Route: 065
  2. ZEPBOUND [Suspect]
     Active Substance: TIRZEPATIDE
     Indication: Weight control
     Dosage: 2.5 MG, UNKNOWN
     Route: 065
  3. ZEPBOUND [Suspect]
     Active Substance: TIRZEPATIDE
     Indication: Weight control
     Dosage: 2.5 MG, UNKNOWN
     Route: 065
  4. ZEPBOUND [Suspect]
     Active Substance: TIRZEPATIDE
     Indication: Weight control
     Dosage: 2.5 MG, UNKNOWN
     Route: 065
  5. ZEPBOUND [Suspect]
     Active Substance: TIRZEPATIDE
     Indication: Blood testosterone decreased
  6. ZEPBOUND [Suspect]
     Active Substance: TIRZEPATIDE
     Indication: Blood testosterone decreased
  7. ZEPBOUND [Suspect]
     Active Substance: TIRZEPATIDE
     Indication: Blood testosterone decreased
  8. ZEPBOUND [Suspect]
     Active Substance: TIRZEPATIDE
     Indication: Blood testosterone decreased
  9. FLEXERIL [Concomitant]
     Active Substance: CYCLOBENZAPRINE HYDROCHLORIDE
     Indication: Product used for unknown indication
  10. AMBIEN [Concomitant]
     Active Substance: ZOLPIDEM TARTRATE
     Indication: Product used for unknown indication
  11. CLONIDINE [Concomitant]
     Active Substance: CLONIDINE
     Indication: Product used for unknown indication
  12. CLONAZEPAM [Concomitant]
     Active Substance: CLONAZEPAM
     Indication: Product used for unknown indication
  13. DULOXETINE [Concomitant]
     Active Substance: DULOXETINE
     Indication: Product used for unknown indication

REACTIONS (1)
  - Accidental underdose [Unknown]

NARRATIVE: CASE EVENT DATE: 20240610
